FAERS Safety Report 9759316 (Version 1)
Quarter: 2013Q4

REPORT INFORMATION
  Report Type: Spontaneous
  Country: US (occurrence: None)
  Receive Date: 20131216
  Receipt Date: 20131216
  Transmission Date: 20140711
  Serious: Yes (Disabling, Other)
  Sender: FDA-Public Use
  Company Number: 163-21880-12041334(0)

PATIENT
  Age: 70 Year
  Sex: Male

DRUGS (1)
  1. REVLIMID (LENALIDOMIDE) (25 MILLIGRAM, CAPSULES)? ? ? ? [Suspect]
     Indication: PLASMA CELL MYELOMA
     Dosage: 25 MG, QD X 14 DAYSOFF 7 DAYS, PO? ? ? ?

REACTIONS (5)
  - Mood swings [None]
  - Depressed level of consciousness [None]
  - Hallucination [None]
  - Insomnia [None]
  - Confusional state [None]
